FAERS Safety Report 7044575-5 (Version None)
Quarter: 2010Q4

REPORT INFORMATION
  Report Type: 
  Country: None (occurrence: None)
  Receive Date: 20101013
  Receipt Date: 20101013
  Transmission Date: 20110411
  Serious: Yes (Life-Threatening)
  Sender: FDA-Public Use
  Company Number: None

PATIENT
  Age: 69 Year
  Sex: Male
  Weight: 93 kg

DRUGS (2)
  1. HEPARIN [Suspect]
     Indication: CARDIAC OPERATION
     Dates: start: 20101006, end: 20101006
  2. HEPARIN [Suspect]

REACTIONS (1)
  - DRUG INEFFECTIVE [None]
